FAERS Safety Report 13404620 (Version 1)
Quarter: 2017Q2

REPORT INFORMATION
  Report Type: Spontaneous
  Country: US (occurrence: US)
  Receive Date: 20170405
  Receipt Date: 20170405
  Transmission Date: 20170830
  Serious: No
  Sender: FDA-Public Use
  Company Number: US-PERRIGO-16US020458

PATIENT
  Age: 60 Year
  Sex: Female
  Weight: 48.98 kg

DRUGS (9)
  1. ASPIRIN                            /00002701/ [Concomitant]
     Active Substance: ASPIRIN
     Indication: PROPHYLAXIS
     Dosage: 81 MG, UNKNOWN
     Route: 065
  2. ACETAMINOPHEN. [Suspect]
     Active Substance: ACETAMINOPHEN
     Indication: BONE PAIN
     Dosage: 1300 MG, QD, PRN
     Route: 048
     Dates: start: 201607
  3. ACETAMINOPHEN. [Suspect]
     Active Substance: ACETAMINOPHEN
     Indication: MYALGIA
  4. LISINOPRIL. [Concomitant]
     Active Substance: LISINOPRIL
     Indication: HYPERTENSION
     Dosage: UNKNOWN, UNKNOWN
     Route: 065
  5. NORVASC [Concomitant]
     Active Substance: AMLODIPINE BESYLATE
     Indication: HYPERTENSION
     Dosage: UNKNOWN, UNKNOWN
     Route: 065
  6. VITAMIN D3 PLUS [Concomitant]
     Indication: SUPPLEMENTATION THERAPY
     Dosage: 1000 IU, UNKNOWN
     Route: 065
  7. PROTONIX [Concomitant]
     Active Substance: PANTOPRAZOLE SODIUM
     Indication: REFLUX GASTRITIS
     Dosage: UNKNOWN, UNKNOWN
     Route: 065
  8. LIPITOR [Concomitant]
     Active Substance: ATORVASTATIN CALCIUM
     Indication: BLOOD CHOLESTEROL
     Dosage: UNKNOWN, UNKNOWN
     Route: 065
  9. CALCIUM [Concomitant]
     Active Substance: CALCIUM
     Indication: SUPPLEMENTATION THERAPY
     Dosage: 600 MG, UNKNOWN
     Route: 065

REACTIONS (1)
  - Drug effect delayed [Unknown]

NARRATIVE: CASE EVENT DATE: 201607
